FAERS Safety Report 24190996 (Version 2)
Quarter: 2024Q4

REPORT INFORMATION
  Report Type: Report from Study
  Country: DE (occurrence: DE)
  Receive Date: 20240808
  Receipt Date: 20241226
  Transmission Date: 20250114
  Serious: Yes (Hospitalization)
  Sender: MYLAN
  Company Number: DE-002147023-NVSC2024DE152684

PATIENT
  Sex: Female
  Weight: 71 kg

DRUGS (6)
  1. FULVESTRANT [Suspect]
     Active Substance: FULVESTRANT
     Indication: Hormone receptor positive breast cancer
     Dosage: 500 MG, QMO
     Route: 030
     Dates: start: 20200615
  2. ZOLEDRONIC ACID [Suspect]
     Active Substance: ZOLEDRONIC ACID
     Indication: Product used for unknown indication
     Dosage: UNK
     Route: 065
  3. KISQALI [Suspect]
     Active Substance: RIBOCICLIB
     Indication: Hormone receptor positive breast cancer
     Dosage: 600 MILLIGRAM, Q21D
     Route: 048
     Dates: start: 20200615, end: 20210209
  4. KISQALI [Suspect]
     Active Substance: RIBOCICLIB
     Dosage: 600 MILLIGRAM, Q21D
     Route: 048
     Dates: start: 20210324, end: 20210525
  5. KISQALI [Suspect]
     Active Substance: RIBOCICLIB
     Dosage: 600 MILLIGRAM, Q21D
     Route: 048
     Dates: start: 20210602, end: 20211019
  6. KISQALI [Suspect]
     Active Substance: RIBOCICLIB
     Dosage: 600 MILLIGRAM, Q21D
     Route: 048
     Dates: start: 20220126, end: 20221208

REACTIONS (2)
  - Osteonecrosis [Recovered/Resolved]
  - Abscess [Recovered/Resolved]

NARRATIVE: CASE EVENT DATE: 20221201
